FAERS Safety Report 9437581 (Version 1)
Quarter: 2013Q3

REPORT INFORMATION
  Report Type: Spontaneous
  Country: US (occurrence: US)
  Receive Date: 20130802
  Receipt Date: 20130802
  Transmission Date: 20140515
  Serious: Yes (Other)
  Sender: FDA-Public Use
  Company Number: US-MYLANLABS-2013S1016994

PATIENT
  Age: 54 Year
  Sex: Male

DRUGS (1)
  1. MORPHINE SULFATE EXTENDED-RELEASE TABLETS [Suspect]
     Indication: PAIN
     Dosage: Q 4-6 HOURS PRN
     Route: 048
     Dates: start: 201306

REACTIONS (2)
  - Intentional drug misuse [Unknown]
  - Injection site abscess [Not Recovered/Not Resolved]
